FAERS Safety Report 8547912-5 (Version None)
Quarter: 2012Q3

REPORT INFORMATION
  Report Type: 
  Country: None (occurrence: None)
  Receive Date: 20120728
  Receipt Date: 20120724
  Transmission Date: 20120928
  Serious: Yes (Hospitalization)
  Sender: FDA-Public Use
  Company Number: DE-009507513-1207DEU009876

PATIENT

DRUGS (1)
  1. IMPLANON [Suspect]
     Indication: CONTRACEPTION
     Dosage: UNK
     Route: 058
     Dates: start: 20111101

REACTIONS (5)
  - BLOOD PRESSURE ABNORMAL [None]
  - PALPITATIONS [None]
  - CARDIOVASCULAR DISORDER [None]
  - ANXIETY [None]
  - AGITATION [None]
